FAERS Safety Report 18674792 (Version 13)
Quarter: 2024Q2

REPORT INFORMATION
  Report Type: Spontaneous
  Country: PL (occurrence: PL)
  Receive Date: 20201228
  Receipt Date: 20240411
  Transmission Date: 20240716
  Serious: Yes (Hospitalization, Other)
  Sender: FDA-Public Use
  Company Number: PL-AUROBINDO-AUR-APL-2020-063198

PATIENT
  Age: 42 Year
  Sex: Male

DRUGS (46)
  1. GABAPENTIN [Suspect]
     Active Substance: GABAPENTIN
     Indication: Pain
     Dosage: 300 MILLIGRAM, 3 TIMES A DAY
     Route: 065
  2. GABAPENTIN [Suspect]
     Active Substance: GABAPENTIN
     Indication: Arthralgia
     Dosage: 300 MILLIGRAM, FOUR TIMES/DAY
     Route: 065
  3. GABAPENTIN [Suspect]
     Active Substance: GABAPENTIN
     Indication: Oesophageal pain
     Dosage: 300 MILLIGRAM, ONCE A DAY (150 MG, 2X PER DAY)
     Route: 065
  4. IBUPROFEN [Suspect]
     Active Substance: IBUPROFEN
     Indication: Mastocytosis
     Dosage: UNK
     Route: 065
  5. IBUPROFEN [Suspect]
     Active Substance: IBUPROFEN
     Indication: Arthralgia
  6. IBUPROFEN [Suspect]
     Active Substance: IBUPROFEN
     Indication: Pain
  7. IBUPROFEN [Suspect]
     Active Substance: IBUPROFEN
     Indication: Bone pain
  8. IBUPROFEN [Suspect]
     Active Substance: IBUPROFEN
     Indication: Analgesic therapy
  9. ACETAMINOPHEN [Suspect]
     Active Substance: ACETAMINOPHEN
     Indication: Pain
     Dosage: UNK
     Route: 065
  10. ACETAMINOPHEN [Suspect]
     Active Substance: ACETAMINOPHEN
     Indication: Analgesic therapy
  11. ACETAMINOPHEN [Suspect]
     Active Substance: ACETAMINOPHEN
     Indication: Arthralgia
  12. ACETAMINOPHEN [Suspect]
     Active Substance: ACETAMINOPHEN
     Indication: Bone pain
  13. PREGABALIN [Suspect]
     Active Substance: PREGABALIN
     Indication: Pain
     Dosage: 150 MILLIGRAM, TWO TIMES A DAY
     Route: 065
  14. PREGABALIN [Suspect]
     Active Substance: PREGABALIN
     Dosage: 300 MILLIGRAM, EVERY HOUR, EVERY  8 HOUR
     Route: 065
  15. TRAMADOL [Suspect]
     Active Substance: TRAMADOL\TRAMADOL HYDROCHLORIDE
     Indication: Analgesic therapy
     Dosage: UNK
     Route: 065
  16. TRAMADOL [Suspect]
     Active Substance: TRAMADOL\TRAMADOL HYDROCHLORIDE
     Indication: Pain
  17. TRAMADOL [Suspect]
     Active Substance: TRAMADOL\TRAMADOL HYDROCHLORIDE
     Indication: Arthralgia
  18. TRAMADOL [Suspect]
     Active Substance: TRAMADOL\TRAMADOL HYDROCHLORIDE
     Indication: Bone pain
  19. TRAMADOL [Suspect]
     Active Substance: TRAMADOL\TRAMADOL HYDROCHLORIDE
     Indication: Mastocytosis
  20. FENTANYL [Suspect]
     Active Substance: FENTANYL\FENTANYL CITRATE
     Indication: Systemic mastocytosis
     Dosage: 200 MICROGRAM,
     Route: 002
  21. FENTANYL [Suspect]
     Active Substance: FENTANYL\FENTANYL CITRATE
     Indication: Arthralgia
  22. FENTANYL [Suspect]
     Active Substance: FENTANYL\FENTANYL CITRATE
     Indication: Pain
  23. FENTANYL [Suspect]
     Active Substance: FENTANYL\FENTANYL CITRATE
     Indication: Mastocytosis
     Dosage: UNK
     Route: 045
  24. FENTANYL [Suspect]
     Active Substance: FENTANYL\FENTANYL CITRATE
     Indication: Arthralgia
  25. KETOPROFEN [Suspect]
     Active Substance: KETOPROFEN
     Indication: Analgesic therapy
     Dosage: UNK
     Route: 065
  26. KETOPROFEN [Suspect]
     Active Substance: KETOPROFEN
     Indication: Arthralgia
  27. KETOPROFEN [Suspect]
     Active Substance: KETOPROFEN
     Indication: Arthralgia
  28. KETOPROFEN [Suspect]
     Active Substance: KETOPROFEN
     Indication: Bone pain
  29. KETOPROFEN [Suspect]
     Active Substance: KETOPROFEN
     Indication: Mastocytosis
  30. METAMIZOLE [Suspect]
     Active Substance: METAMIZOLE
     Indication: Pain
     Dosage: UNK
     Route: 065
  31. METAMIZOLE [Suspect]
     Active Substance: METAMIZOLE
     Indication: Analgesic therapy
  32. METAMIZOLE [Suspect]
     Active Substance: METAMIZOLE
     Indication: Arthralgia
  33. METAMIZOLE [Suspect]
     Active Substance: METAMIZOLE
     Indication: Bone pain
  34. METAMIZOLE [Suspect]
     Active Substance: METAMIZOLE
     Indication: Mastocytosis
  35. MORPHINE [Suspect]
     Active Substance: MORPHINE
     Indication: Pain
     Dosage: UNK
     Route: 065
  36. MORPHINE [Suspect]
     Active Substance: MORPHINE
     Indication: Analgesic therapy
  37. MORPHINE [Suspect]
     Active Substance: MORPHINE
     Indication: Arthralgia
  38. MORPHINE [Suspect]
     Active Substance: MORPHINE
     Indication: Bone pain
  39. MORPHINE [Suspect]
     Active Substance: MORPHINE
     Indication: Mastocytosis
  40. OXYCODONE [Suspect]
     Active Substance: OXYCODONE\OXYCODONE HYDROCHLORIDE
     Indication: Pain
     Dosage: 80 MILLIGRAM, 3 TIMES A DAY
     Route: 048
  41. OXYCODONE [Suspect]
     Active Substance: OXYCODONE\OXYCODONE HYDROCHLORIDE
     Indication: Arthralgia
     Dosage: 80 MILLIGRAM, FOUR TIMES/DAY
     Route: 048
  42. OXYCODONE [Suspect]
     Active Substance: OXYCODONE\OXYCODONE HYDROCHLORIDE
     Dosage: 100 MILLIGRAM, FOUR TIMES/DAY
     Route: 065
  43. OXYCODONE [Suspect]
     Active Substance: OXYCODONE\OXYCODONE HYDROCHLORIDE
     Dosage: UNK, TWO TIMES A DAY
     Route: 065
  44. OXYCODONE [Suspect]
     Active Substance: OXYCODONE\OXYCODONE HYDROCHLORIDE
     Dosage: 100 MILLIGRAM, 3 TIMES A DAY
     Route: 065
  45. OXYCODONE [Suspect]
     Active Substance: OXYCODONE\OXYCODONE HYDROCHLORIDE
     Dosage: 80 MILLIGRAM, EVERY HOUR
     Route: 065
  46. CLADRIBINE [Concomitant]
     Active Substance: CLADRIBINE
     Indication: Systemic mastocytosis
     Dosage: UNK
     Route: 065

REACTIONS (16)
  - Gingival pain [Not Recovered/Not Resolved]
  - Toothache [Not Recovered/Not Resolved]
  - Constipation [Recovered/Resolved]
  - Anaphylactic reaction [Recovered/Resolved]
  - Anaphylactic shock [Recovered/Resolved]
  - Rhinitis allergic [Recovered/Resolved]
  - Hypersensitivity [Recovered/Resolved]
  - Drug intolerance [Unknown]
  - Drug dependence [Recovered/Resolved]
  - Therapeutic response decreased [Unknown]
  - Therapeutic product effect incomplete [Unknown]
  - Drug ineffective [Unknown]
  - Teething [Not Recovered/Not Resolved]
  - Pain [Recovered/Resolved]
  - Myalgia [Unknown]
  - Product use in unapproved indication [Unknown]
